FAERS Safety Report 7009356-7 (Version None)
Quarter: 2010Q3

REPORT INFORMATION
  Report Type: 
  Country: None (occurrence: None)
  Receive Date: 20100921
  Receipt Date: 20100915
  Transmission Date: 20110219
  Serious: Yes (Life-Threatening, Hospitalization, Disabling)
  Sender: FDA-Public Use
  Company Number: 2010JP004001

PATIENT
  Age: 85 Year
  Sex: Male
  Weight: 55 kg

DRUGS (17)
  1. VESICARE [Suspect]
     Indication: HYPERTONIC BLADDER
     Dosage: 5 MG, UID/QD, ORAL; 10 MG, ORAL
     Route: 048
     Dates: start: 20100625, end: 20100625
  2. VESICARE [Suspect]
     Indication: POLLAKIURIA
     Dosage: 5 MG, UID/QD, ORAL; 10 MG, ORAL
     Route: 048
     Dates: start: 20100625, end: 20100625
  3. VESICARE [Suspect]
     Indication: HYPERTONIC BLADDER
     Dosage: 5 MG, UID/QD, ORAL; 10 MG, ORAL
     Route: 048
     Dates: start: 20100626, end: 20100629
  4. VESICARE [Suspect]
     Indication: POLLAKIURIA
     Dosage: 5 MG, UID/QD, ORAL; 10 MG, ORAL
     Route: 048
     Dates: start: 20100626, end: 20100629
  5. FLUITRAN (TRICHLORMETHAZIDE) [Concomitant]
  6. SLOW-K [Concomitant]
  7. BAYLOTENSIN (NITRENDIPINE) [Concomitant]
  8. TAMSULOSIN HCL [Concomitant]
  9. SARPOGRELATE (SARPOGRELATE) [Concomitant]
  10. SHAKUYAKUKANZOUTOU (HERBAL EXTRACT NOS) [Concomitant]
  11. BUP-4 (PROPIVERINE HYDROCHLORIDE) [Concomitant]
  12. PENIFOR (PROPIVERINE HYDROCHLORIDE) [Concomitant]
  13. PALNAC (TAMSULOSIN HYDROCHLORIDE) [Concomitant]
  14. BUPVERINE (PROPIVERINE HYDROCHLORIDE) [Concomitant]
  15. LAXOBERON (SODIUM PICOSULFATE) [Concomitant]
  16. HALCION [Concomitant]
  17. NEISAT (DIFLUCORTOLONE VALERATE, LIDOCAINE) [Concomitant]

REACTIONS (17)
  - BLOOD PRESSURE INCREASED [None]
  - CEREBROVASCULAR ACCIDENT [None]
  - DECREASED APPETITE [None]
  - DIARRHOEA [None]
  - DISABILITY [None]
  - HEART RATE INCREASED [None]
  - HYPOGLYCAEMIC COMA [None]
  - HYPOGLYCAEMIC ENCEPHALOPATHY [None]
  - INCORRECT DOSE ADMINISTERED [None]
  - MALAISE [None]
  - PNEUMONIA [None]
  - PNEUMONIA ASPIRATION [None]
  - PSEUDOMONAS INFECTION [None]
  - RESPIRATORY FAILURE [None]
  - SPUTUM CULTURE POSITIVE [None]
  - STAPHYLOCOCCAL INFECTION [None]
  - VOMITING [None]
